FAERS Safety Report 20519802 (Version 1)
Quarter: 2022Q1

REPORT INFORMATION
  Report Type: Spontaneous
  Country: US (occurrence: None)
  Receive Date: 20220225
  Receipt Date: 20220225
  Transmission Date: 20220423
  Serious: Yes (Death)
  Sender: FDA-Public Use
  Company Number: None

PATIENT
  Age: 76 Year
  Sex: Male
  Weight: 91. kg

DRUGS (1)
  1. BREYANZI [Suspect]
     Active Substance: LISOCABTAGENE MARALEUCEL

REACTIONS (11)
  - Immune effector cell-associated neurotoxicity syndrome [None]
  - Somnolence [None]
  - Depressed level of consciousness [None]
  - Encephalopathy [None]
  - Loss of personal independence in daily activities [None]
  - Depressed level of consciousness [None]
  - Oxygen consumption increased [None]
  - Acute respiratory failure [None]
  - Pleural effusion [None]
  - Clostridium difficile colitis [None]
  - Acute kidney injury [None]

NARRATIVE: CASE EVENT DATE: 20220218
